FAERS Safety Report 8762335 (Version 1)
Quarter: 2012Q4

REPORT INFORMATION
  Report Type: 
  Country: IT (occurrence: IT)
  Receive Date: 20120830
  Receipt Date: 20120830
  Transmission Date: 20130627
  Serious: Yes (Other)
  Sender: FDA-Public Use
  Company Number: IT-PFIZER INC-2012212223

PATIENT
  Age: 42 Year
  Sex: Male

DRUGS (2)
  1. TAZOCIN [Suspect]
     Indication: BACTERIAL INFECTION
     Dosage: 12 g, daily
     Route: 042
     Dates: start: 20120531, end: 20120608
  2. BACTRIM [Suspect]
     Indication: ANTIBIOTIC PROPHYLAXIS
     Dosage: 160 mg, daily
     Route: 048
     Dates: start: 20120601, end: 20120609

REACTIONS (2)
  - Q fever [Recovering/Resolving]
  - Rash generalised [Recovering/Resolving]
